FAERS Safety Report 8151905-X (Version None)
Quarter: 2012Q1

REPORT INFORMATION
  Report Type: 
  Country: None (occurrence: None)
  Receive Date: 20120214
  Receipt Date: 20120209
  Transmission Date: 20120608
  Serious: Yes (Other)
  Sender: FDA-Public Use
  Company Number: IL-2012-0463

PATIENT
  Age: 67 Year
  Sex: Male

DRUGS (3)
  1. NAVELBINE [Suspect]
     Indication: LUNG NEOPLASM MALIGNANT
     Dosage: 25 MG/M2, IV
     Route: 042
  2. CISPLATIN [Concomitant]
  3. MITOMYCIN [Concomitant]

REACTIONS (3)
  - HYPERHIDROSIS [None]
  - TACHYCARDIA [None]
  - ACUTE PULMONARY OEDEMA [None]
